FAERS Safety Report 4325205-X (Version None)
Quarter: 2004Q1

REPORT INFORMATION
  Report Type: 
  Country: None (occurrence: None)
  Receive Date: 20040323
  Receipt Date: 20031209
  Transmission Date: 20041129
  Serious: No
  Sender: FDA-Public Use
  Company Number: USA031254344

PATIENT
  Sex: Male

DRUGS (1)
  1. CIALIS [Suspect]
     Indication: SEXUAL DYSFUNCTION
     Dosage: 10 MG
     Dates: start: 20030101

REACTIONS (1)
  - DRUG INEFFECTIVE [None]
